FAERS Safety Report 13896472 (Version 1)
Quarter: 2017Q3

REPORT INFORMATION
  Report Type: Spontaneous
  Country: US (occurrence: None)
  Receive Date: 20170816
  Receipt Date: 20170816
  Transmission Date: 20171127
  Serious: No
  Sender: FDA-Public Use
  Company Number: None

PATIENT
  Age: 52 Year
  Sex: Male
  Weight: 106.14 kg

DRUGS (1)
  1. LISINOPRIL. [Suspect]
     Active Substance: LISINOPRIL
     Indication: HYPERTENSION
     Dosage: 1 TAB EVERYDAY PO
     Route: 048
     Dates: start: 20161208, end: 20170421

REACTIONS (7)
  - Productive cough [None]
  - Upper-airway cough syndrome [None]
  - Sneezing [None]
  - Rhinorrhoea [None]
  - Throat irritation [None]
  - Cough [None]
  - Wheezing [None]

NARRATIVE: CASE EVENT DATE: 20170323
